FAERS Safety Report 4543841-2 (Version None)
Quarter: 2005Q1

REPORT INFORMATION
  Report Type: 
  Country: None (occurrence: None)
  Receive Date: 20050103
  Receipt Date: 20021016
  Transmission Date: 20050727
  Serious: Yes (Life-Threatening, Hospitalization)
  Sender: FDA-Public Use
  Company Number: GXKR2002DE00440

PATIENT
  Age: 65 Year
  Sex: Female

DRUGS (6)
  1. LISINOPRIL [Suspect]
     Indication: HYPERTENSION
     Dosage: 5 MG/DAY, ORAL
     Route: 048
     Dates: end: 20020805
  2. DIOVAN [Suspect]
     Indication: HYPERTENSION
     Dosage: 80 MG, BID, ORAL
     Route: 048
     Dates: end: 20020805
  3. FINLEPSIN (CARBAMAZEPINE) TABLET [Suspect]
     Indication: HEMIPARESIS
     Dosage: ORAL
     Route: 048
     Dates: start: 19800101
  4. KARVEZIDE (HYDROCHLOROTHIAZIDE, IRBESARTAN) TABLET [Suspect]
     Indication: HYPERTENSION
     Dosage: 1 DF, QD
     Dates: start: 20020806, end: 20020807
  5. ORFIRIL (VALPROATE SODIUM) FILM-COATED TABLET [Suspect]
     Indication: PROPHYLAXIS
     Dosage: 600 MG, BID, ORAL
     Route: 048
     Dates: start: 19900101, end: 20020809
  6. JENACARD (ISOSORBIDE DINITRATE) [Concomitant]

REACTIONS (8)
  - ABDOMINAL PAIN UPPER [None]
  - DIARRHOEA [None]
  - DRUG INTERACTION [None]
  - HEADACHE [None]
  - HEPATITIS CHOLESTATIC [None]
  - HYPERTENSION [None]
  - NAUSEA [None]
  - VOMITING [None]
